FAERS Safety Report 4827535-1 (Version None)
Quarter: 2005Q4

REPORT INFORMATION
  Report Type: 
  Country: None (occurrence: None)
  Receive Date: 20051114
  Receipt Date: 20051102
  Transmission Date: 20060501
  Serious: Yes (Hospitalization, Other)
  Sender: FDA-Public Use
  Company Number: PHEH2005US12151

PATIENT
  Age: 43 Year
  Sex: Male

DRUGS (1)
  1. RITALIN [Suspect]
     Indication: ATTENTION DEFICIT/HYPERACTIVITY DISORDER
     Dosage: 20 MG, BID
     Route: 048
     Dates: start: 20051010

REACTIONS (6)
  - AFFECT LABILITY [None]
  - CHEST PAIN [None]
  - COXSACKIE PERICARDITIS [None]
  - PERICARDITIS [None]
  - PLEURISY [None]
  - PLEURITIC PAIN [None]
